FAERS Safety Report 10218483 (Version 2)
Quarter: 2014Q2

REPORT INFORMATION
  Report Type: Report from Study
  Country: RU (occurrence: RU)
  Receive Date: 20140605
  Receipt Date: 20140605
  Transmission Date: 20141212
  Serious: Yes (Death)
  Sender: FDA-Public Use
  Company Number: RU-ROCHE-1371288

PATIENT
  Age: 66 Year
  Sex: Female
  Weight: 55 kg

DRUGS (13)
  1. RITUXIMAB [Suspect]
     Indication: DIFFUSE LARGE B-CELL LYMPHOMA
     Dosage: DATE OF MOST RECENT DOSE (VOLUME : 400 ML, DOSE CONCENTRATION : 1.68 MG/ML) PRIOR TO AE ONSET : 03/M
     Route: 042
     Dates: start: 20131205
  2. CYCLOPHOSPHAMIDE [Suspect]
     Indication: DIFFUSE LARGE B-CELL LYMPHOMA
     Dosage: DATE OF MOST RECENT DOSE (1333 MG) PRIOR TO AE ONSET : 04/MAR/2014.
     Route: 042
     Dates: start: 20131206
  3. DOXORUBICIN [Suspect]
     Indication: DIFFUSE LARGE B-CELL LYMPHOMA
     Dosage: DATE OF MOST RECENT DOSE (89 MG) PRIOR TO AE ONSET : 04/MAR/2014.
     Route: 042
     Dates: start: 20131206
  4. VINCRISTINE [Suspect]
     Indication: DIFFUSE LARGE B-CELL LYMPHOMA
     Dosage: DATE OF MOST RECENT DOSE (2 MG) PRIOR TO AE ONSET : 04/MAR/2014.
     Route: 041
     Dates: start: 20131206
  5. PREDNISONE [Suspect]
     Indication: DIFFUSE LARGE B-CELL LYMPHOMA
     Dosage: DATE OF MOST RECENT DOSE (100 MG) PRIOR TO AE ONSET : 08/FEB/2014.
     Route: 065
     Dates: start: 20131206
  6. ALLOPURINOL [Concomitant]
     Indication: PROPHYLAXIS
     Route: 065
     Dates: start: 20131205
  7. NUTRISON MULTIFIBRE [Concomitant]
     Route: 065
     Dates: start: 20131225
  8. PANCREATIN [Concomitant]
     Indication: PROPHYLAXIS
     Route: 065
     Dates: start: 20131226
  9. CEFOTAXIM [Concomitant]
     Indication: GRANULOCYTOPENIA
     Route: 065
     Dates: start: 20140218
  10. AMIKACINE [Concomitant]
     Indication: GRANULOCYTOPENIA
     Route: 065
     Dates: start: 20140218
  11. FILGRASTIM [Concomitant]
     Indication: GRANULOCYTOPENIA
     Route: 065
     Dates: start: 20140218
  12. METOCLOPRAMIDE [Concomitant]
     Indication: NAUSEA
     Route: 065
     Dates: start: 20140216, end: 20140218
  13. KALII CHLORIDI [Concomitant]
     Indication: HYPOKALAEMIA
     Route: 065
     Dates: start: 20140218, end: 20140227

REACTIONS (1)
  - Toxic encephalopathy [Fatal]
